FAERS Safety Report 16278120 (Version 1)
Quarter: 2019Q2

REPORT INFORMATION
  Report Type: Spontaneous
  Country: US (occurrence: US)
  Receive Date: 20190506
  Receipt Date: 20190506
  Transmission Date: 20190711
  Serious: Yes (Other)
  Sender: FDA-Public Use
  Company Number: US-MTPC-MTDA2019-0048999

PATIENT

DRUGS (1)
  1. RADICAVA [Suspect]
     Active Substance: EDARAVONE
     Indication: PRODUCT USED FOR UNKNOWN INDICATION
     Route: 065

REACTIONS (7)
  - Gastrointestinal tube insertion [Unknown]
  - Dysarthria [Unknown]
  - Dysphagia [Unknown]
  - Dysphonia [Unknown]
  - Gait disturbance [Unknown]
  - Muscular weakness [Unknown]
  - Drug ineffective [Unknown]
